FAERS Safety Report 15624409 (Version 1)
Quarter: 2018Q4

REPORT INFORMATION
  Report Type: Spontaneous
  Country: US (occurrence: US)
  Receive Date: 20181116
  Receipt Date: 20181116
  Transmission Date: 20190205
  Serious: No
  Sender: FDA-Public Use
  Company Number: US-TEVA-2018-US-972667

PATIENT
  Age: 70 Year
  Sex: Female

DRUGS (1)
  1. LORAZ TAB-A [Suspect]
     Active Substance: LORAZEPAM
     Indication: ENDOCRINE DISORDER
     Route: 065

REACTIONS (7)
  - Product substitution issue [Unknown]
  - Dry throat [Unknown]
  - Chest pain [Unknown]
  - Wrong technique in product usage process [Unknown]
  - Dizziness [Unknown]
  - Nausea [Unknown]
  - Muscle twitching [Unknown]
